FAERS Safety Report 6666953-6 (Version None)
Quarter: 2010Q2

REPORT INFORMATION
  Report Type: 
  Country: None (occurrence: None)
  Receive Date: 20100405
  Receipt Date: 20100329
  Transmission Date: 20101027
  Serious: Yes (Death)
  Sender: FDA-Public Use
  Company Number: PHEH2010US03300

PATIENT
  Sex: Female

DRUGS (2)
  1. TOBI [Suspect]
     Indication: CYSTIC FIBROSIS
     Dosage: 300 MG, BID FOR 14 DAYS
     Dates: start: 20090320, end: 20091229
  2. TOBI [Suspect]
     Indication: LUNG INFECTION PSEUDOMONAL

REACTIONS (2)
  - CHRONIC LYMPHOCYTIC LEUKAEMIA [None]
  - CHRONIC OBSTRUCTIVE PULMONARY DISEASE [None]
